FAERS Safety Report 4680907-0 (Version None)
Quarter: 2005Q2

REPORT INFORMATION
  Report Type: 
  Country: None (occurrence: None)
  Receive Date: 20050603
  Receipt Date: 20050524
  Transmission Date: 20051028
  Serious: Yes (Hospitalization)
  Sender: FDA-Public Use
  Company Number: PHBS2005US07490

PATIENT
  Age: 56 Year
  Sex: Male

DRUGS (1)
  1. METOPROLOL [Suspect]

REACTIONS (5)
  - DYSPNOEA [None]
  - FATIGUE [None]
  - PALPITATIONS [None]
  - RADIOFREQUENCY ABLATION [None]
  - SUPRAVENTRICULAR TACHYCARDIA [None]
